FAERS Safety Report 6115771-6 (Version None)
Quarter: 2009Q1

REPORT INFORMATION
  Report Type: 
  Country: None (occurrence: None)
  Receive Date: 20090313
  Receipt Date: 20090123
  Transmission Date: 20090719
  Serious: No
  Sender: FDA-Public Use
  Company Number: US-ABBOTT-09P-163-0499631-00

PATIENT
  Sex: Female
  Weight: 81.72 kg

DRUGS (7)
  1. HUMIRA [Suspect]
     Indication: PSORIATIC ARTHROPATHY
     Route: 058
     Dates: start: 20080101, end: 20080601
  2. HUMIRA [Suspect]
     Indication: PSORIASIS
     Route: 058
     Dates: start: 20080701
  3. CELEBREX [Concomitant]
     Indication: ARTHRITIS
  4. FENTANYL-25 [Concomitant]
     Indication: PAIN
     Route: 061
  5. ATENOLOL [Concomitant]
     Indication: HYPERTENSION
     Route: 048
  6. OXYBUTYNIN CHLORIDE [Concomitant]
     Indication: URINARY INCONTINENCE
     Dosage: UNSURE OF STRENGTH
     Route: 048
  7. OXYBUTYNIN CHLORIDE [Concomitant]
     Indication: URGE INCONTINENCE

REACTIONS (3)
  - DRUG INEFFECTIVE [None]
  - INJECTION SITE HAEMORRHAGE [None]
  - INJECTION SITE PAIN [None]
